FAERS Safety Report 15791306 (Version 1)
Quarter: 2019Q1

REPORT INFORMATION
  Report Type: Spontaneous
  Country: IT (occurrence: IT)
  Receive Date: 20190104
  Receipt Date: 20190104
  Transmission Date: 20190417
  Serious: Yes (Other)
  Sender: FDA-Public Use
  Company Number: IT-TEVA-2019-IT-994867

PATIENT
  Age: 74 Year
  Sex: Male

DRUGS (3)
  1. FACTOR VIII CONCENTRATE [Concomitant]
     Active Substance: ANTIHEMOPHILIC FACTOR HUMAN
     Dosage: UNKNOWN INITIAL DOSAGE; LATER, THE DOSAGE WAS TAPERED.
     Route: 065
  2. FACTOR VIII CONCENTRATE [Concomitant]
     Active Substance: ANTIHEMOPHILIC FACTOR HUMAN
     Route: 065
  3. CLOPIDOGREL [Suspect]
     Active Substance: CLOPIDOGREL BISULFATE
     Indication: ATRIAL FIBRILLATION
     Route: 065

REACTIONS (2)
  - Epistaxis [Recovered/Resolved]
  - Haemarthrosis [Recovered/Resolved]
